FAERS Safety Report 11155129 (Version 1)
Quarter: 2015Q2

REPORT INFORMATION
  Report Type: Spontaneous
  Country: AU (occurrence: None)
  Receive Date: 20150529
  Receipt Date: 20150529
  Transmission Date: 20150821
  Serious: Yes (Hospitalization, Other)
  Sender: FDA-Public Use
  Company Number: AU-ZYDUS-008184

PATIENT
  Age: 51 Year
  Sex: Female

DRUGS (4)
  1. RIZATRIPTAN [Suspect]
     Active Substance: RIZATRIPTAN
     Indication: HEADACHE
     Dosage: 10.00-MG-
  2. PARACETAMOL (PARACETAMOL) [Concomitant]
     Active Substance: ACETAMINOPHEN
  3. OXYCODONE (OXYCODONE) [Concomitant]
     Active Substance: OXYCODONE
  4. INDOMETHACIN. [Suspect]
     Active Substance: INDOMETHACIN
     Indication: PAIN
     Dosage: 100.00-MG-

REACTIONS (2)
  - Subarachnoid haemorrhage [None]
  - Reversible cerebral vasoconstriction syndrome [None]
